FAERS Safety Report 21180215 (Version 2)
Quarter: 2022Q3

REPORT INFORMATION
  Report Type: Spontaneous
  Country: DE (occurrence: DE)
  Receive Date: 20220806
  Receipt Date: 20220908
  Transmission Date: 20221026
  Serious: Yes (Hospitalization, Other)
  Sender: FDA-Public Use
  Company Number: DE-MYLANLABS-2022M1051594

PATIENT
  Sex: Male

DRUGS (9)
  1. IBUPROFEN [Suspect]
     Active Substance: IBUPROFEN
     Indication: Axial spondyloarthritis
     Dosage: 600 MILLIGRAM
     Route: 065
     Dates: start: 20180401, end: 20180404
  2. IBUPROFEN [Suspect]
     Active Substance: IBUPROFEN
     Dosage: 1200 MILLIGRAM
     Route: 065
     Dates: start: 20181001, end: 20181015
  3. IBUPROFEN [Suspect]
     Active Substance: IBUPROFEN
     Dosage: 1200 MILLIGRAM
     Route: 065
     Dates: start: 20220130
  4. ETORICOXIB [Suspect]
     Active Substance: ETORICOXIB
     Indication: Axial spondyloarthritis
     Dosage: 120 MILLIGRAM
     Route: 065
     Dates: start: 20170505
  5. ETORICOXIB [Suspect]
     Active Substance: ETORICOXIB
     Dosage: 30 MILLIGRAM
     Route: 065
     Dates: start: 20170505
  6. ETORICOXIB [Suspect]
     Active Substance: ETORICOXIB
     Dosage: 30 MILLIGRAM
     Route: 065
     Dates: start: 20170505, end: 20171001
  7. ETORICOXIB [Suspect]
     Active Substance: ETORICOXIB
     Dosage: 90 MILLIGRAM
     Route: 065
     Dates: start: 20190114
  8. ETORICOXIB [Suspect]
     Active Substance: ETORICOXIB
     Dosage: 60 MILLIGRAM
     Route: 065
     Dates: start: 20190114
  9. ETORICOXIB [Suspect]
     Active Substance: ETORICOXIB
     Dosage: 120 MILLIGRAM
     Route: 065
     Dates: start: 20201210

REACTIONS (2)
  - Laryngopharyngitis [Unknown]
  - Product use in unapproved indication [Unknown]

NARRATIVE: CASE EVENT DATE: 20220126
